FAERS Safety Report 6187012-5 (Version None)
Quarter: 2009Q2

REPORT INFORMATION
  Report Type: 
  Country: None (occurrence: None)
  Receive Date: 20090508
  Receipt Date: 20090508
  Transmission Date: 20091009
  Serious: No
  Sender: FDA-Public Use
  Company Number: None

PATIENT
  Age: 57 Year
  Sex: Female
  Weight: 70.3075 kg

DRUGS (3)
  1. LAMICTAL [Suspect]
     Indication: NERVOUS SYSTEM DISORDER
     Dosage: 200MG TWICE DAILY PO, 550MG DAILY
     Route: 048
     Dates: start: 20050701, end: 20090507
  2. LAMICTAL [Suspect]
     Indication: PAIN
     Dosage: 200MG TWICE DAILY PO, 550MG DAILY
     Route: 048
     Dates: start: 20050701, end: 20090507
  3. LAMOTRIGINE [Suspect]
     Dosage: 200MG TWICE DAILY PO
     Route: 048

REACTIONS (3)
  - CIRCUMSTANCE OR INFORMATION CAPABLE OF LEADING TO MEDICATION ERROR [None]
  - PRODUCT COLOUR ISSUE [None]
  - PRODUCT SHAPE ISSUE [None]
